FAERS Safety Report 7726530-2 (Version None)
Quarter: 2011Q3

REPORT INFORMATION
  Report Type: 
  Country: None (occurrence: None)
  Receive Date: 20110902
  Receipt Date: 20110824
  Transmission Date: 20111222
  Serious: Yes (Other)
  Sender: FDA-Public Use
  Company Number: PHFR2011GB04808

PATIENT
  Sex: Male

DRUGS (2)
  1. LANSOPRAZOLE [Concomitant]
     Indication: GASTRIC PH DECREASED
     Dosage: 30 MG, UNK
     Route: 048
  2. CLOZAPINE [Suspect]
     Indication: SCHIZOPHRENIA
     Dosage: 450 MG/DAY
     Route: 048
     Dates: start: 20041222

REACTIONS (1)
  - HEPATITIS C VIRUS TEST POSITIVE [None]
